FAERS Safety Report 7052322-6 (Version None)
Quarter: 2010Q4

REPORT INFORMATION
  Report Type: 
  Country: None (occurrence: None)
  Receive Date: 20101018
  Receipt Date: 20101018
  Transmission Date: 20110411
  Serious: Yes (Other)
  Sender: FDA-Public Use
  Company Number: None

PATIENT
  Age: 63 Year
  Sex: Female
  Weight: 116.5744 kg

DRUGS (1)
  1. ANY SYNTHETIC INSULIN -ZINC-BASE [Suspect]
     Indication: DIABETES MELLITUS
     Dosage: SLIDING SCALE
     Dates: start: 19900101, end: 20101013

REACTIONS (12)
  - ARTHRALGIA [None]
  - BLOOD GLUCOSE DECREASED [None]
  - BLOOD GLUCOSE INCREASED [None]
  - BONE PAIN [None]
  - DRUG EFFECT DELAYED [None]
  - DYSSTASIA [None]
  - FEELING COLD [None]
  - GAIT DISTURBANCE [None]
  - HYPOAESTHESIA [None]
  - IMMOBILE [None]
  - MUSCULOSKELETAL DISCOMFORT [None]
  - SKIN WARM [None]
